FAERS Safety Report 8151921-8 (Version None)
Quarter: 2012Q1

REPORT INFORMATION
  Report Type: 
  Country: None (occurrence: None)
  Receive Date: 20120221
  Receipt Date: 20120216
  Transmission Date: 20120608
  Serious: No
  Sender: FDA-Public Use
  Company Number: US-PFIZER INC-2012020289

PATIENT
  Sex: Male
  Weight: 68 kg

DRUGS (1)
  1. CHANTIX [Suspect]
     Indication: SMOKING CESSATION THERAPY
     Dosage: 1 MG, 2X/DAY
     Route: 048
     Dates: start: 20111231

REACTIONS (4)
  - INSOMNIA [None]
  - CONSTIPATION [None]
  - ABNORMAL DREAMS [None]
  - NAUSEA [None]
